FAERS Safety Report 23287061 (Version 1)
Quarter: 2023Q4

REPORT INFORMATION
  Report Type: Spontaneous
  Country: GB (occurrence: GB)
  Receive Date: 20231212
  Receipt Date: 20231212
  Transmission Date: 20240109
  Serious: Yes (Death, Other)
  Sender: FDA-Public Use
  Company Number: GB-SANDOZ-SDZ2023GB066991

PATIENT
  Sex: Male

DRUGS (4)
  1. TACROLIMUS [Suspect]
     Active Substance: TACROLIMUS
     Indication: Transplant
     Dosage: 0.5 MG, AT NIGHT
     Route: 048
  2. AZATHIOPRINE [Suspect]
     Active Substance: AZATHIOPRINE
     Indication: Product used for unknown indication
     Dosage: 50+25 MG
     Route: 065
  3. PREDNISOLONE [Suspect]
     Active Substance: PREDNISOLONE
     Indication: Product used for unknown indication
     Dosage: 5 MG
     Route: 065
  4. VALGANCICLOVIR [Suspect]
     Active Substance: VALGANCICLOVIR
     Indication: Product used for unknown indication
     Dosage: 450 MG
     Route: 065

REACTIONS (1)
  - Death [Fatal]
